FAERS Safety Report 21225869 (Version 13)
Quarter: 2022Q4

REPORT INFORMATION
  Report Type: Spontaneous
  Country: US (occurrence: US)
  Receive Date: 20220818
  Receipt Date: 20221221
  Transmission Date: 20230113
  Serious: Yes (Death, Hospitalization, Other)
  Sender: FDA-Public Use
  Company Number: US-UNITED THERAPEUTICS-UNT-2022-018026

PATIENT
  Sex: Male
  Weight: 90.249 kg

DRUGS (5)
  1. REMODULIN [Suspect]
     Active Substance: TREPROSTINIL
     Indication: Pulmonary arterial hypertension
     Dosage: UNK, CONTINUING
     Route: 058
     Dates: start: 20211230
  2. REMODULIN [Suspect]
     Active Substance: TREPROSTINIL
     Dosage: 0.0444 ?G/KG, CONTINUING
     Route: 058
  3. REMODULIN [Suspect]
     Active Substance: TREPROSTINIL
     Dosage: UNK, CONTINUING
     Route: 058
  4. REMODULIN [Suspect]
     Active Substance: TREPROSTINIL
     Dosage: 0.0462 ?G/KG, CONTINUING
     Route: 058
  5. SILDENAFIL [Concomitant]
     Active Substance: SILDENAFIL
     Indication: Product used for unknown indication
     Dosage: UNK
     Route: 065

REACTIONS (24)
  - Death [Fatal]
  - Respiratory failure [Unknown]
  - Hypotension [Unknown]
  - Oxygen saturation decreased [Unknown]
  - Oxygen consumption increased [Unknown]
  - Dyspnoea [Unknown]
  - Asthma [Unknown]
  - Cyanosis [Unknown]
  - Pulmonary oedema [Unknown]
  - Illness [Unknown]
  - Erythema [Unknown]
  - Infusion site erythema [Unknown]
  - Infusion site pain [Unknown]
  - Infusion site reaction [Unknown]
  - Abdominal rigidity [Unknown]
  - Asthenia [Unknown]
  - Fatigue [Unknown]
  - Amnesia [Not Recovered/Not Resolved]
  - Joint swelling [Unknown]
  - Frequent bowel movements [Unknown]
  - Somnolence [Unknown]
  - Accident [Unknown]
  - Head injury [Unknown]
  - Device infusion issue [Unknown]

NARRATIVE: CASE EVENT DATE: 20220101
